FAERS Safety Report 6154973-X (Version None)
Quarter: 2009Q2

REPORT INFORMATION
  Report Type: 
  Country: None (occurrence: None)
  Receive Date: 20090410
  Receipt Date: 20090326
  Transmission Date: 20091009
  Serious: Yes (Other)
  Sender: FDA-Public Use
  Company Number: DSA_33482_2009

PATIENT
  Age: 66 Year
  Sex: Female
  Weight: 91 kg

DRUGS (20)
  1. TIAZAC [Suspect]
     Dosage: (240 MG QD ORAL)
     Route: 048
  2. ALTACE (UNKNOWN) [Concomitant]
  3. CANESTEN /00212501/ (UNKNOWN) [Concomitant]
  4. EZETROL (UNKNOWN) [Concomitant]
  5. NITROGEN, LIQUID (UNKNOWN) [Concomitant]
  6. LASIX /00032601/ (UNKNOWN) [Concomitant]
  7. IMOVANE (UNKNOWN) [Concomitant]
  8. PLAVIX /01220701/ (UNKNOWN) [Concomitant]
  9. FLOVENT (UNKNOWN) [Concomitant]
  10. IMDUR [Concomitant]
  11. NOVAHISTEX /00083101/ (UNKNOWN) [Concomitant]
  12. LIPITOR [Concomitant]
  13. NASONEX (UNKNOWN) [Concomitant]
  14. PARIET (UNKNOWN) [Concomitant]
  15. UNIDET (UNKNOWN) [Concomitant]
  16. DOMPERIDONE (UNKNOWN) [Concomitant]
  17. HYDROCORTISONE (UNKNOWN) [Concomitant]
  18. OCUVITE EXTRA (UNKNOWN) [Concomitant]
  19. ACETYLSALICYLIC ACID ENTERIC COATED (UNKNOWN) [Concomitant]
  20. ARTHROTEC /01182401/ (UNKNOWN) [Concomitant]

REACTIONS (5)
  - ABDOMINAL PAIN [None]
  - ARTHRALGIA [None]
  - DYSPHAGIA [None]
  - JOINT SWELLING [None]
  - MUSCULOSKELETAL CHEST PAIN [None]
